FAERS Safety Report 25368578 (Version 2)
Quarter: 2025Q3

REPORT INFORMATION
  Report Type: Spontaneous
  Country: EU (occurrence: EU)
  Receive Date: 20250528
  Receipt Date: 20250722
  Transmission Date: 20251021
  Serious: Yes (Other)
  Sender: PFIZER
  Company Number: EU-SANDOZ-SDZ2025IT021638

PATIENT
  Age: 55 Year
  Sex: Male
  Weight: 80 kg

DRUGS (17)
  1. FENOFIBRATE [Interacting]
     Active Substance: FENOFIBRATE
     Indication: Hyperlipidaemia
     Dosage: 145 MG, 1X/DAY (ONCE DAILY)
     Route: 048
     Dates: start: 2016, end: 20241010
  2. FENOFIBRATE [Interacting]
     Active Substance: FENOFIBRATE
     Indication: Type IIa hyperlipidaemia
  3. BEMPEDOIC ACID [Interacting]
     Active Substance: BEMPEDOIC ACID
     Indication: Type IIa hyperlipidaemia
     Dosage: 180 MG, 1X/DAY (ONCE DAILY)
     Route: 048
     Dates: start: 20230501
  4. LEVOTHYROXINE [Interacting]
     Active Substance: LEVOTHYROXINE
     Indication: Hyperlipidaemia
     Dosage: 175 UG, 1X/DAY
     Route: 065
  5. LEVOTHYROXINE [Interacting]
     Active Substance: LEVOTHYROXINE
     Dosage: 175 UG, 1X/DAY
     Route: 065
  6. EZETIMIBE [Interacting]
     Active Substance: EZETIMIBE
     Indication: Hyperlipidaemia
     Dosage: 10 MG, 1X/DAY (ONCE DAILY)
     Route: 065
  7. EZETIMIBE [Interacting]
     Active Substance: EZETIMIBE
     Dosage: 10 MG, 1X/DAY (ONCE DAILY)
     Route: 065
  8. EVOLOCUMAB [Interacting]
     Active Substance: EVOLOCUMAB
     Indication: Hyperlipidaemia
     Route: 065
     Dates: start: 2017
  9. EVOLOCUMAB [Interacting]
     Active Substance: EVOLOCUMAB
     Route: 058
  10. RANOLAZINE [Interacting]
     Active Substance: RANOLAZINE
     Indication: Hyperlipidaemia
     Dosage: 375 MG, 2X/WEEK
     Route: 065
  11. RANOLAZINE [Interacting]
     Active Substance: RANOLAZINE
     Dosage: 375 MG, 2X/WEEK
     Route: 065
  12. RANOLAZINE [Interacting]
     Active Substance: RANOLAZINE
     Dosage: 750 MG, WEEKLY
     Route: 065
  13. BISOPROLOL FUMARATE [Interacting]
     Active Substance: BISOPROLOL FUMARATE
     Indication: Hyperlipidaemia
     Route: 065
  14. BISOPROLOL FUMARATE [Interacting]
     Active Substance: BISOPROLOL FUMARATE
     Dosage: 1.25 MG, 2X/DAY
     Route: 065
  15. VALSARTAN [Interacting]
     Active Substance: VALSARTAN
     Indication: Hyperlipidaemia
     Dosage: 80 MG, 1X/DAY
     Route: 065
  16. VALSARTAN [Interacting]
     Active Substance: VALSARTAN
     Dosage: 80 MG, 1X/DAY
     Route: 065
  17. ASPIRIN [Concomitant]
     Active Substance: ASPIRIN

REACTIONS (4)
  - High density lipoprotein decreased [Recovering/Resolving]
  - Hypercholesterolaemia [Unknown]
  - High density lipoprotein decreased [Recovering/Resolving]
  - Drug interaction [Unknown]

NARRATIVE: CASE EVENT DATE: 20240905
